FAERS Safety Report 6105581-8 (Version None)
Quarter: 2009Q1

REPORT INFORMATION
  Report Type: 
  Country: None (occurrence: None)
  Receive Date: 20090304
  Receipt Date: 20090304
  Transmission Date: 20090719
  Serious: Yes (Death, Hospitalization)
  Sender: FDA-Public Use
  Company Number: None

PATIENT
  Age: 51 Year
  Sex: Male
  Weight: 68.7 kg

DRUGS (1)
  1. LPAM [Suspect]
     Indication: AMYLOIDOSIS
     Dosage: 320 MG 1 X 2 DAYS IV
     Route: 042
     Dates: start: 20090211, end: 20090212

REACTIONS (5)
  - CARDIAC ARREST [None]
  - ELECTROMECHANICAL DISSOCIATION [None]
  - MULTI-ORGAN FAILURE [None]
  - PNEUMONIA RESPIRATORY SYNCYTIAL VIRAL [None]
  - RESPIRATORY FAILURE [None]
